FAERS Safety Report 6039040-8 (Version None)
Quarter: 2009Q1

REPORT INFORMATION
  Report Type: 
  Country: None (occurrence: None)
  Receive Date: 20090115
  Receipt Date: 20090108
  Transmission Date: 20090719
  Serious: Yes (Other)
  Sender: FDA-Public Use
  Company Number: US-ABBOTT-09P-163-0496630-00

PATIENT
  Sex: Female
  Weight: 71.278 kg

DRUGS (1)
  1. HUMIRA [Suspect]
     Indication: RHEUMATOID ARTHRITIS
     Dates: start: 20070301, end: 20081201

REACTIONS (4)
  - EAR DISORDER [None]
  - METASTASES TO LYMPH NODES [None]
  - TONSIL CANCER [None]
  - TONSILLITIS [None]
